FAERS Safety Report 9215495 (Version 1)
Quarter: 2013Q2

REPORT INFORMATION
  Report Type: Spontaneous
  Country: US (occurrence: US)
  Receive Date: 20130406
  Receipt Date: 20130406
  Transmission Date: 20140414
  Serious: No
  Sender: FDA-Public Use
  Company Number: US-009507513-1304USA002142

PATIENT
  Sex: Female

DRUGS (1)
  1. INTEGRILIN [Suspect]
     Dosage: 17 MG, ONCE
     Route: 058
     Dates: start: 20130330

REACTIONS (4)
  - Injection site bruising [Recovering/Resolving]
  - Injection site scab [Recovering/Resolving]
  - Injection site pain [Recovering/Resolving]
  - Incorrect route of drug administration [Unknown]
